FAERS Safety Report 18603578 (Version 1)
Quarter: 2020Q4

REPORT INFORMATION
  Report Type: Spontaneous
  Country: US (occurrence: US)
  Receive Date: 20201210
  Receipt Date: 20201210
  Transmission Date: 20210114
  Serious: Yes (Other)
  Sender: FDA-Public Use
  Company Number: None

PATIENT
  Age: 37 Year
  Sex: Male

DRUGS (2)
  1. OPMS LIQUID KRATOM EXTRACT [Suspect]
     Active Substance: HERBALS\MITRAGYNINE
     Indication: ANXIETY
  2. OPMS LIQUID KRATOM EXTRACT [Suspect]
     Active Substance: HERBALS\MITRAGYNINE
     Indication: PAIN

REACTIONS (2)
  - Drug dependence [None]
  - Drug abuser [None]

NARRATIVE: CASE EVENT DATE: 20201210
